FAERS Safety Report 8134741-X (Version None)
Quarter: 2012Q1

REPORT INFORMATION
  Report Type: 
  Country: None (occurrence: None)
  Receive Date: 20120214
  Receipt Date: 20120208
  Transmission Date: 20120608
  Serious: Yes (Other)
  Sender: FDA-Public Use
  Company Number: US-PFIZER INC-2012034959

PATIENT
  Sex: Female
  Weight: 90.703 kg

DRUGS (3)
  1. GLUCOTROL [Suspect]
     Indication: TYPE 2 DIABETES MELLITUS
     Dosage: 10 MG, 2X/DAY
  2. TOPROL-XL [Concomitant]
     Indication: HYPERTENSION
     Dosage: 25 MG, DAILY
  3. VALSARTAN [Concomitant]
     Indication: HYPERTENSION
     Dosage: 12.25 MG, DAILY

REACTIONS (1)
  - BLOOD GLUCOSE INCREASED [None]
